FAERS Safety Report 6637393-0 (Version None)
Quarter: 2010Q1

REPORT INFORMATION
  Report Type: 
  Country: None (occurrence: None)
  Receive Date: 20100316
  Receipt Date: 20100311
  Transmission Date: 20100710
  Serious: Yes (Death)
  Sender: FDA-Public Use
  Company Number: US-MERCK-1002USA03206

PATIENT
  Age: 70 Year
  Sex: Male
  Weight: 93 kg

DRUGS (4)
  1. ZOLINZA [Suspect]
     Indication: MYCOSIS FUNGOIDES
     Route: 048
     Dates: start: 20041215, end: 20060206
  2. IMODIUM [Concomitant]
     Route: 048
  3. LIPITOR [Concomitant]
     Route: 048
  4. GENTEAL [Concomitant]
     Route: 047

REACTIONS (2)
  - NAIL DISCOLOURATION [None]
  - T-CELL LYMPHOMA [None]
